FAERS Safety Report 10043078 (Version 1)
Quarter: 2014Q1

REPORT INFORMATION
  Report Type: Spontaneous
  Country: US (occurrence: US)
  Receive Date: 20140328
  Receipt Date: 20140328
  Transmission Date: 20141002
  Serious: No
  Sender: FDA-Public Use
  Company Number: US-BIOGENIDEC-2014BI017648

PATIENT
  Age: 39 Year
  Sex: Female

DRUGS (2)
  1. AVONEX [Suspect]
     Indication: MULTIPLE SCLEROSIS
     Route: 030
     Dates: start: 20080601, end: 20120301
  2. AVONEX [Suspect]
     Indication: MULTIPLE SCLEROSIS
     Route: 030
     Dates: start: 20130519

REACTIONS (4)
  - Thyroid disorder [Not Recovered/Not Resolved]
  - Autoimmune thyroiditis [Recovered/Resolved]
  - Thyroid function test abnormal [Recovered/Resolved]
  - Hyperthyroidism [Recovered/Resolved]
